FAERS Safety Report 4328520-9 (Version None)
Quarter: 2004Q1

REPORT INFORMATION
  Report Type: 
  Country: None (occurrence: None)
  Receive Date: 20040331
  Receipt Date: 20040318
  Transmission Date: 20041129
  Serious: Yes (Death)
  Sender: FDA-Public Use
  Company Number: NL-MERCK-0403NLD00022

PATIENT
  Age: 67 Year
  Sex: Male

DRUGS (12)
  1. ACETAMINOPHEN [Concomitant]
     Route: 065
  2. ASPIRIN [Concomitant]
     Route: 048
  3. DALTEPARIN SODIUM [Concomitant]
     Route: 051
  4. DEXAMETHASONE [Concomitant]
     Route: 065
  5. FENTANYL [Concomitant]
     Route: 065
  6. METOCLOPRAMIDE HYDROCHLORIDE [Concomitant]
     Route: 065
  7. METOPROLOL TARTRATE [Concomitant]
     Route: 065
  8. MORPHINE [Concomitant]
     Route: 065
  9. MORPHINE SULFATE [Concomitant]
     Route: 065
  10. PANTOPRAZOLE SODIUM [Concomitant]
     Route: 065
  11. VIOXX [Suspect]
     Indication: PAIN
     Route: 048
     Dates: start: 20040212, end: 20040216
  12. SENNOSIDES [Concomitant]
     Route: 065

REACTIONS (6)
  - ARRHYTHMIA [None]
  - DEATH [None]
  - DELIRIUM [None]
  - MENTAL IMPAIRMENT [None]
  - REFUSAL OF TREATMENT BY PATIENT [None]
  - RENAL FAILURE [None]
